FAERS Safety Report 23982240 (Version 2)
Quarter: 2024Q2

REPORT INFORMATION
  Report Type: Spontaneous
  Country: JP (occurrence: JP)
  Receive Date: 20240617
  Receipt Date: 20240625
  Transmission Date: 20240715
  Serious: Yes (Other)
  Sender: FDA-Public Use
  Company Number: JP-MLMSERVICE-20240606-PI089889-00249-2

PATIENT
  Age: 51 Year
  Sex: Female

DRUGS (9)
  1. OXALIPLATIN [Suspect]
     Active Substance: OXALIPLATIN
     Indication: Metastases to lymph nodes
     Dosage: UNK UNK, QCY (10 CYCLES)
  2. OXALIPLATIN [Suspect]
     Active Substance: OXALIPLATIN
     Indication: Metastases to liver
  3. OXALIPLATIN [Suspect]
     Active Substance: OXALIPLATIN
     Indication: Gastric neoplasm
  4. GIMERACIL\OTERACIL\TEGAFUR [Suspect]
     Active Substance: GIMERACIL\OTERACIL POTASSIUM\TEGAFUR
     Indication: Metastases to lymph nodes
     Dosage: UNK UNK, QCY (10 CYCLES)
  5. GIMERACIL\OTERACIL\TEGAFUR [Suspect]
     Active Substance: GIMERACIL\OTERACIL POTASSIUM\TEGAFUR
     Indication: Metastases to liver
  6. GIMERACIL\OTERACIL\TEGAFUR [Suspect]
     Active Substance: GIMERACIL\OTERACIL POTASSIUM\TEGAFUR
     Indication: Gastric neoplasm
  7. NIVOLUMAB [Suspect]
     Active Substance: NIVOLUMAB
     Indication: Metastases to lymph nodes
     Dosage: UNK UNK, QCY (10 CYCLES)
  8. NIVOLUMAB [Suspect]
     Active Substance: NIVOLUMAB
     Indication: Metastases to liver
     Dosage: UNK, QCY (5 CYCLES OF MONOTHERAPY)
  9. NIVOLUMAB [Suspect]
     Active Substance: NIVOLUMAB
     Indication: Gastric neoplasm

REACTIONS (3)
  - Drug-induced liver injury [Unknown]
  - Abdominal pain upper [Unknown]
  - Venoocclusive liver disease [Unknown]
